FAERS Safety Report 14360763 (Version 1)
Quarter: 2018Q1

REPORT INFORMATION
  Report Type: Spontaneous
  Country: US (occurrence: US)
  Receive Date: 20180107
  Receipt Date: 20180107
  Transmission Date: 20180509
  Serious: No
  Sender: FDA-Public Use
  Company Number: US-TEVA-2017-US-841585

PATIENT
  Sex: Male

DRUGS (2)
  1. PROAIR HFA [Suspect]
     Active Substance: ALBUTEROL SULFATE
     Indication: STEVENS-JOHNSON SYNDROME
  2. VENTOLIN [Suspect]
     Active Substance: ALBUTEROL SULFATE
     Route: 065

REACTIONS (4)
  - Pharyngeal erythema [Unknown]
  - Wheezing [Unknown]
  - Dry throat [Unknown]
  - Throat irritation [Unknown]

NARRATIVE: CASE EVENT DATE: 20171221
